FAERS Safety Report 9008532 (Version 3)
Quarter: 2013Q3

REPORT INFORMATION
  Report Type: Spontaneous
  Country: JP (occurrence: JP)
  Receive Date: 20130111
  Receipt Date: 20130924
  Transmission Date: 20140515
  Serious: Yes (Hospitalization, Other)
  Sender: FDA-Public Use
  Company Number: PHHY2013JP002249

PATIENT
  Age: 10 Year
  Sex: Female

DRUGS (2)
  1. GLIVEC [Suspect]
     Indication: ACUTE LYMPHOCYTIC LEUKAEMIA
     Dosage: 400 MG
     Route: 048
     Dates: start: 20111004, end: 20111019
  2. GLIVEC [Suspect]
     Dosage: 400 MG
     Route: 048
     Dates: start: 20111104

REACTIONS (6)
  - Neutropenic colitis [Recovered/Resolved]
  - Abdominal distension [Unknown]
  - Abdominal pain [Unknown]
  - Bacteraemia [Recovered/Resolved]
  - Bone marrow failure [Unknown]
  - Ascites [Unknown]
